FAERS Safety Report 9485735 (Version 1)
Quarter: 2013Q3

REPORT INFORMATION
  Report Type: Spontaneous
  Country: US (occurrence: None)
  Receive Date: 20130827
  Receipt Date: 20130827
  Transmission Date: 20140515
  Serious: Yes (Life-Threatening, Hospitalization, Disabling, Congenital Anomaly, Other)
  Sender: FDA-Public Use
  Company Number: None

PATIENT
  Sex: Female

DRUGS (3)
  1. BENDECTIN [Suspect]
     Indication: NAUSEA
     Dosage: WHEN I HEARD IT^S BACK IN USE, HAD TO TELL YOU HOW BAD IT IS!
     Dates: start: 197804, end: 197807
  2. BENDECTIN [Suspect]
     Indication: VOMITING IN PREGNANCY
     Dosage: WHEN I HEARD IT^S BACK IN USE, HAD TO TELL YOU HOW BAD IT IS!
     Dates: start: 197804, end: 197807
  3. LEVOTHYROXINE [Concomitant]

REACTIONS (9)
  - Arthropathy [None]
  - Mental disorder [None]
  - Suicide attempt [None]
  - Schizoaffective disorder [None]
  - Major depression [None]
  - Anxiety [None]
  - Borderline personality disorder [None]
  - Coma [None]
  - Abnormal behaviour [None]
